FAERS Safety Report 23331960 (Version 1)
Quarter: 2023Q4

REPORT INFORMATION
  Report Type: Spontaneous
  Country: US (occurrence: US)
  Receive Date: 20231222
  Receipt Date: 20231222
  Transmission Date: 20240109
  Serious: No
  Sender: FDA-Public Use
  Company Number: US-SUN PHARMACEUTICAL INDUSTRIES LTD-2023R1-408681

PATIENT
  Age: 14 Year

DRUGS (1)
  1. ISOTRETINOIN [Suspect]
     Active Substance: ISOTRETINOIN
     Indication: Product used for unknown indication
     Dosage: UNK
     Route: 065
     Dates: start: 20221101

REACTIONS (17)
  - Lip dry [Unknown]
  - Chapped lips [Unknown]
  - Nasal dryness [Unknown]
  - Epistaxis [Unknown]
  - Dry eye [Unknown]
  - Aspartate aminotransferase increased [Unknown]
  - Rash [Unknown]
  - Dizziness [Unknown]
  - Headache [Unknown]
  - Fatigue [Unknown]
  - Nausea [Unknown]
  - Photosensitivity reaction [Unknown]
  - Blister [Unknown]
  - Dry skin [Unknown]
  - Blood triglycerides increased [Unknown]
  - Blood cholesterol increased [Unknown]
  - Alanine aminotransferase increased [Unknown]

NARRATIVE: CASE EVENT DATE: 20221212
